FAERS Safety Report 5485838-4 (Version None)
Quarter: 2007Q4

REPORT INFORMATION
  Report Type: 
  Country: None (occurrence: None)
  Receive Date: 20071015
  Receipt Date: 20071004
  Transmission Date: 20080405
  Serious: Yes (Hospitalization)
  Sender: FDA-Public Use
  Company Number: US-SANOFI-SYNTHELABO-A03200705426

PATIENT
  Sex: Male
  Weight: 81.6 kg

DRUGS (8)
  1. ELIGARD [Suspect]
     Indication: PROSTATIC SPECIFIC ANTIGEN INCREASED
     Dosage: 6-MONTH INJECTION
     Route: 058
     Dates: start: 20070402, end: 20070402
  2. PREDNISONE [Concomitant]
     Dosage: 4-10 MG TABLETS DAILY WITH BREAKFAST (VARIED AS DIRECTED)
     Route: 048
  3. VITAMIN D [Concomitant]
     Route: 065
  4. CALCIUM CARBONATE [Concomitant]
     Route: 065
  5. ASCORBIC ACID [Concomitant]
     Route: 065
  6. NEXIUM [Concomitant]
     Route: 048
     Dates: start: 20070706
  7. VITAMIN CAP [Concomitant]
     Route: 065
  8. ASPIRIN [Concomitant]
     Route: 048
     Dates: end: 20070629

REACTIONS (1)
  - IDIOPATHIC THROMBOCYTOPENIC PURPURA [None]
